FAERS Safety Report 17277116 (Version 1)
Quarter: 2020Q1

REPORT INFORMATION
  Report Type: Spontaneous
  Country: US (occurrence: US)
  Receive Date: 20191226
  Receipt Date: 20191226
  Transmission Date: 20200409
  Serious: Yes (Death)
  Sender: FDA-Public Use
  Company Number: None

PATIENT
  Age: 46 Year
  Sex: Female
  Weight: 68.04 kg

DRUGS (2)
  1. IC CIPROFLOXACIN HCL 500MG TAB [Suspect]
     Active Substance: CIPROFLOXACIN HYDROCHLORIDE
     Indication: URINARY TRACT INFECTION
     Dosage: ?          QUANTITY:500 MG MILLIGRAM(S);?
     Route: 048
     Dates: start: 20191014, end: 20191025
  2. IC FLUCONAZOLE [Concomitant]

REACTIONS (2)
  - Completed suicide [None]
  - Suicidal ideation [None]

NARRATIVE: CASE EVENT DATE: 20191025
